FAERS Safety Report 13022061 (Version 1)
Quarter: 2016Q4

REPORT INFORMATION
  Report Type: Report from Study
  Country: US (occurrence: US)
  Receive Date: 20161213
  Receipt Date: 20161213
  Transmission Date: 20170207
  Serious: Yes (Hospitalization)
  Sender: FDA-Public Use
  Company Number: US-UCBSA-2016046705

PATIENT
  Age: 40 Year
  Sex: Female

DRUGS (3)
  1. LEVETIRACETAM. [Suspect]
     Active Substance: LEVETIRACETAM
     Indication: PRODUCT USED FOR UNKNOWN INDICATION
     Dosage: UNK
  2. ATIVAN [Concomitant]
     Active Substance: LORAZEPAM
     Indication: PRODUCT USED FOR UNKNOWN INDICATION
     Dosage: UNK
  3. VIMPAT [Suspect]
     Active Substance: LACOSAMIDE
     Indication: PRODUCT USED FOR UNKNOWN INDICATION
     Dosage: UNK

REACTIONS (17)
  - Hernia [Unknown]
  - Musculoskeletal pain [Unknown]
  - Pain [Unknown]
  - Somnolence [Unknown]
  - Neck pain [Unknown]
  - Abdominal pain upper [Unknown]
  - Anxiety [Unknown]
  - Facial pain [Unknown]
  - Panic attack [Unknown]
  - Haemorrhage [Unknown]
  - Contusion [Unknown]
  - Depression [Unknown]
  - Headache [Unknown]
  - Stress [Unknown]
  - Migraine [Unknown]
  - Seizure [Unknown]
  - Pain in jaw [Unknown]

NARRATIVE: CASE EVENT DATE: 2016
